FAERS Safety Report 8021085-X (Version None)
Quarter: 2012Q1

REPORT INFORMATION
  Report Type: 
  Country: None (occurrence: None)
  Receive Date: 20120104
  Receipt Date: 20111227
  Transmission Date: 20120608
  Serious: Yes (Other)
  Sender: FDA-Public Use
  Company Number: US-JNJFOC-20111212859

PATIENT
  Sex: Female

DRUGS (11)
  1. CYCLOPHOSPHAMIDE [Suspect]
     Route: 065
  2. DOXORUBICIN HCL [Suspect]
     Indication: BREAST CANCER
     Route: 042
  3. TRASTUZUMAB [Suspect]
     Indication: BREAST CANCER
     Dosage: INITIAL LOADING DOSE
     Route: 065
  4. CYCLOPHOSPHAMIDE [Suspect]
     Indication: BREAST CANCER
     Route: 065
  5. DOXORUBICIN HCL [Suspect]
     Route: 042
  6. PACLITAXEL [Suspect]
     Indication: BREAST CANCER
     Route: 065
  7. DOXORUBICIN HCL [Suspect]
     Route: 042
  8. TRASTUZUMAB [Suspect]
     Route: 065
  9. CYCLOPHOSPHAMIDE [Suspect]
     Route: 065
  10. CYCLOPHOSPHAMIDE [Suspect]
     Route: 065
  11. DOXORUBICIN HCL [Suspect]
     Route: 042

REACTIONS (1)
  - NEOPLASM MALIGNANT [None]
